FAERS Safety Report 9486322 (Version 1)
Quarter: 2013Q3

REPORT INFORMATION
  Report Type: Spontaneous
  Country: US (occurrence: US)
  Receive Date: 20130829
  Receipt Date: 20130829
  Transmission Date: 20140515
  Serious: No
  Sender: FDA-Public Use
  Company Number: US-PFIZER INC-2013245803

PATIENT
  Age: 57 Year
  Sex: Male
  Weight: 86.17 kg

DRUGS (3)
  1. TOVIAZ [Suspect]
     Indication: HYPERTONIC BLADDER
     Dosage: 8 MG, 1X/DAY
     Dates: start: 201308
  2. ENABLEX [Suspect]
     Indication: HYPERTONIC BLADDER
     Dosage: UNK
  3. HYDROXYZINE HYDROCHLORIDE [Concomitant]
     Dosage: 25 MG, UNK

REACTIONS (3)
  - Drug ineffective [Unknown]
  - Urine flow decreased [Unknown]
  - Drug ineffective [Unknown]
